FAERS Safety Report 4545740-9 (Version None)
Quarter: 2005Q1

REPORT INFORMATION
  Report Type: 
  Country: None (occurrence: None)
  Receive Date: 20050103
  Receipt Date: 20041210
  Transmission Date: 20050727
  Serious: Yes (Hospitalization)
  Sender: FDA-Public Use
  Company Number: USA041285862

PATIENT
  Age: 61 Year
  Sex: Male
  Weight: 136 kg

DRUGS (2)
  1. HUMALOG [Suspect]
     Indication: DIABETES MELLITUS
     Dosage: 150 U DAY
     Dates: start: 20010101
  2. HUMULIN N [Suspect]
     Indication: DIABETES MELLITUS
     Dosage: 120 U DAY
     Dates: start: 19890101

REACTIONS (9)
  - ATROPHY [None]
  - BLOOD PRESSURE INCREASED [None]
  - HYPERKERATOSIS [None]
  - HYPOAESTHESIA [None]
  - NEUROPATHIC ARTHROPATHY [None]
  - PHARMACEUTICAL PRODUCT COMPLAINT [None]
  - POOR PERIPHERAL CIRCULATION [None]
  - SKIN ULCER [None]
  - SKIN WARM [None]
